FAERS Safety Report 6631830-3 (Version None)
Quarter: 2010Q1

REPORT INFORMATION
  Report Type: 
  Country: None (occurrence: None)
  Receive Date: 20100312
  Receipt Date: 20100303
  Transmission Date: 20100710
  Serious: Yes (Life-Threatening, Hospitalization, Other)
  Sender: FDA-Public Use
  Company Number: GB-ROCHE-683969

PATIENT
  Sex: Male
  Weight: 72 kg

DRUGS (1)
  1. XELODA [Suspect]
     Route: 048
     Dates: start: 20090915, end: 20091030

REACTIONS (16)
  - CONFUSIONAL STATE [None]
  - DERMATITIS INFECTED [None]
  - DIARRHOEA [None]
  - FLUID INTAKE REDUCED [None]
  - GASTROENTERITIS RADIATION [None]
  - HYPOALBUMINAEMIA [None]
  - HYPOPHAGIA [None]
  - HYPOTENSION [None]
  - JAUNDICE [None]
  - MALAISE [None]
  - ORAL DISORDER [None]
  - SEPSIS [None]
  - SKIN DISORDER [None]
  - SKIN TOXICITY [None]
  - SMALL INTESTINAL OBSTRUCTION [None]
  - STAPHYLOCOCCAL INFECTION [None]
